FAERS Safety Report 8270724-7 (Version None)
Quarter: 2012Q2

REPORT INFORMATION
  Report Type: 
  Country: None (occurrence: None)
  Receive Date: 20120410
  Receipt Date: 20120402
  Transmission Date: 20120825
  Serious: Yes (Hospitalization)
  Sender: FDA-Public Use
  Company Number: US-BAYER-2012-026627

PATIENT
  Age: 36 Year
  Sex: Female

DRUGS (8)
  1. YASMIN [Suspect]
     Indication: MENSTRUATION IRREGULAR
  2. YAZ [Suspect]
     Indication: MENSTRUATION IRREGULAR
  3. ALBUTEROL [Concomitant]
     Dosage: TWO APPLICATIONS EVERY 4 HOURS
  4. NEXIUM [Concomitant]
     Dosage: 1 TABLET , QD
  5. PERCOCET [Concomitant]
  6. ZOLOFT [Concomitant]
     Dosage: 50 MG, QD
  7. YAZ [Suspect]
     Indication: CONTRACEPTION
     Dosage: UNK
     Dates: start: 20081101, end: 20090101
  8. YASMIN [Suspect]
     Indication: CONTRACEPTION
     Dosage: UNK
     Dates: start: 20080101, end: 20090101

REACTIONS (4)
  - PULMONARY EMBOLISM [None]
  - INJURY [None]
  - EMOTIONAL DISTRESS [None]
  - PAIN [None]
